FAERS Safety Report 15328276 (Version 1)
Quarter: 2018Q3

REPORT INFORMATION
  Report Type: Spontaneous
  Country: TW (occurrence: TW)
  Receive Date: 20180829
  Receipt Date: 20180829
  Transmission Date: 20181010
  Serious: Yes (Death, Other)
  Sender: FDA-Public Use
  Company Number: TW-AMGEN-TWNSP2018117833

PATIENT
  Age: 88 Year
  Sex: Male

DRUGS (4)
  1. GENIQUIN [Concomitant]
     Dosage: 200 MG, QD
  2. ARHEUMA [Concomitant]
     Dosage: 20 MG, DAILY
  3. SALAZINE [Concomitant]
     Active Substance: SULFASALAZINE
     Dosage: 1 G, UNK
  4. ENBREL [Suspect]
     Active Substance: ETANERCEPT
     Indication: RHEUMATOID ARTHRITIS
     Dosage: 25 MG, 2 TIMES/WK
     Route: 058
     Dates: start: 201212

REACTIONS (1)
  - Death [Fatal]

NARRATIVE: CASE EVENT DATE: 201808
